FAERS Safety Report 6534500-5 (Version None)
Quarter: 2010Q1

REPORT INFORMATION
  Report Type: 
  Country: None (occurrence: None)
  Receive Date: 20100112
  Receipt Date: 20091230
  Transmission Date: 20100710
  Serious: Yes (Other)
  Sender: FDA-Public Use
  Company Number: US-PFIZER INC-2009316358

PATIENT
  Sex: Female
  Weight: 63.492 kg

DRUGS (1)
  1. CABERGOLINE [Suspect]
     Indication: PROLACTINOMA
     Dosage: FREQUENCY: ONCE A WEEK,
     Dates: start: 20070101

REACTIONS (4)
  - BLOOD PROLACTIN INCREASED [None]
  - FATIGUE [None]
  - MEDICATION ERROR [None]
  - NAUSEA [None]
